FAERS Safety Report 13850931 (Version 1)
Quarter: 2017Q3

REPORT INFORMATION
  Report Type: Spontaneous
  Country: US (occurrence: US)
  Receive Date: 20170809
  Receipt Date: 20170809
  Transmission Date: 20171127
  Serious: Yes (Other)
  Sender: FDA-Public Use
  Company Number: US-HQ SPECIALTY-US-2017INT000287

PATIENT
  Age: 27 Year
  Sex: Male

DRUGS (4)
  1. LEVETIRACETAM IN SODIUM CHLORIDE INJECTION [Suspect]
     Active Substance: LEVETIRACETAM
     Indication: GENERALISED TONIC-CLONIC SEIZURE
     Dosage: 1000 MG, UNK
  2. ATIVAN [Suspect]
     Active Substance: LORAZEPAM
     Indication: GENERALISED TONIC-CLONIC SEIZURE
     Dosage: 1 MG, UNK
  3. LEVETIRACETAM IN SODIUM CHLORIDE INJECTION [Suspect]
     Active Substance: LEVETIRACETAM
     Indication: HAEMORRHAGE INTRACRANIAL
     Dosage: 1000 MG, BID
  4. ATIVAN [Suspect]
     Active Substance: LORAZEPAM
     Indication: HAEMORRHAGE INTRACRANIAL

REACTIONS (1)
  - Rhabdomyolysis [Recovered/Resolved]
